FAERS Safety Report 8594590-5 (Version None)
Quarter: 2012Q3

REPORT INFORMATION
  Report Type: 
  Country: None (occurrence: None)
  Receive Date: 20120815
  Receipt Date: 20120813
  Transmission Date: 20120928
  Serious: Yes (Other)
  Sender: FDA-Public Use
  Company Number: GT-ABBOTT-12P-069-0964695-00

PATIENT
  Sex: Female

DRUGS (4)
  1. HUMIRA [Suspect]
     Indication: ANKYLOSING SPONDYLITIS
     Route: 058
     Dates: start: 20120413, end: 20120701
  2. METHOTREXATE [Concomitant]
     Indication: ANKYLOSING SPONDYLITIS
     Route: 048
  3. STEROIDS [Concomitant]
     Indication: ANKYLOSING SPONDYLITIS
     Route: 048
  4. ARAVA [Concomitant]
     Indication: ANKYLOSING SPONDYLITIS
     Route: 048

REACTIONS (2)
  - RECTAL HAEMORRHAGE [None]
  - TUBERCULIN TEST POSITIVE [None]
